FAERS Safety Report 12656152 (Version 1)
Quarter: 2016Q3

REPORT INFORMATION
  Report Type: Spontaneous
  Country: US (occurrence: US)
  Receive Date: 20160816
  Receipt Date: 20160816
  Transmission Date: 20161109
  Serious: Yes (Other)
  Sender: FDA-Public Use
  Company Number: US-PFIZER INC-2016374398

PATIENT
  Age: 78 Year
  Sex: Female

DRUGS (4)
  1. POTASSIUM IODIDE. [Concomitant]
     Active Substance: POTASSIUM IODIDE
     Indication: THYROID DISORDER
     Dosage: 5 GTT, DAILY
  2. ASPIRIN. [Concomitant]
     Active Substance: ASPIRIN
     Dosage: 2 TABLETS OF 325MG EVERY DAY
  3. NITROSTAT [Suspect]
     Active Substance: NITROGLYCERIN
     Indication: ANGINA PECTORIS
     Dosage: 0.4 MG, AS NEEDED
     Route: 048
  4. POTASSIUM IODIDE. [Concomitant]
     Active Substance: POTASSIUM IODIDE
     Dosage: UNK UNK, AS NEEDED

REACTIONS (8)
  - Feeling abnormal [Recovered/Resolved]
  - Product quality issue [Unknown]
  - Loss of consciousness [Unknown]
  - Cardiac discomfort [Recovered/Resolved]
  - Pain [Unknown]
  - Drug effect incomplete [Recovered/Resolved]
  - Road traffic accident [Unknown]
  - Paraesthesia [Recovered/Resolved]

NARRATIVE: CASE EVENT DATE: 20160802
